FAERS Safety Report 5747271-7 (Version None)
Quarter: 2008Q2

REPORT INFORMATION
  Report Type: 
  Country: None (occurrence: None)
  Receive Date: 20080520
  Receipt Date: 20080501
  Transmission Date: 20081010
  Serious: Yes (Hospitalization)
  Sender: FDA-Public Use
  Company Number: 002#3#2008-00414

PATIENT
  Age: 15 Year
  Sex: Female

DRUGS (5)
  1. OMEPRAZOLE [Suspect]
     Indication: GASTROINTESTINAL DISORDER
     Dosage: ORAL
     Route: 048
     Dates: start: 20051001, end: 20051027
  2. PREDNISOLONE [Suspect]
     Indication: DRUG USE FOR UNKNOWN INDICATION
     Dosage: ORAL
     Route: 048
     Dates: start: 20050901, end: 20051031
  3. MESTINON [Suspect]
     Indication: MYASTHENIA GRAVIS
     Dosage: 90MG, 4 IN 1 D, ORAL
     Route: 048
     Dates: start: 20050920, end: 20051031
  4. MINOCIN [Suspect]
     Indication: ACNE
     Dates: end: 20051031
  5. STEROID THERAPY [Concomitant]

REACTIONS (1)
  - TOXIC EPIDERMAL NECROLYSIS [None]
